FAERS Safety Report 6133182-4 (Version None)
Quarter: 2009Q1

REPORT INFORMATION
  Report Type: 
  Country: None (occurrence: None)
  Receive Date: 20090324
  Receipt Date: 20090324
  Transmission Date: 20090719
  Serious: Yes (Hospitalization)
  Sender: FDA-Public Use
  Company Number: None

PATIENT
  Age: 58 Year
  Sex: Male

DRUGS (12)
  1. WARFARIN SODIUM [Suspect]
     Indication: PULMONARY EMBOLISM
     Dosage: 5MG DAILY PO
     Route: 048
     Dates: start: 20080825, end: 20080902
  2. LUPRON [Concomitant]
  3. CASODEX [Concomitant]
  4. FENTANYL-25 [Concomitant]
  5. ASPIRIN [Concomitant]
  6. ACETAMINOPHEN [Concomitant]
  7. VYTORIN [Concomitant]
  8. FAMOTIDINE [Concomitant]
  9. FOLIC ACID [Concomitant]
  10. FUROSEMIDE [Concomitant]
  11. HYDROCHLOROTHIAZIDE [Concomitant]
  12. LANTUS [Concomitant]

REACTIONS (6)
  - FOOT AMPUTATION [None]
  - HAEMORRHAGE [None]
  - HYPOTENSION [None]
  - IMPAIRED HEALING [None]
  - INTERNATIONAL NORMALISED RATIO INCREASED [None]
  - UNRESPONSIVE TO STIMULI [None]
